FAERS Safety Report 4872663-8 (Version None)
Quarter: 2006Q1

REPORT INFORMATION
  Report Type: 
  Country: None (occurrence: None)
  Receive Date: 20060103
  Receipt Date: 20051221
  Transmission Date: 20060701
  Serious: Yes (Hospitalization)
  Sender: FDA-Public Use
  Company Number: 2005EN000472

PATIENT
  Age: 54 Year
  Sex: Female

DRUGS (4)
  1. ABELCET [Suspect]
     Indication: LUNG INFECTION
     Dates: start: 20030101, end: 20030101
  2. ABELCET [Suspect]
     Indication: RESPIRATORY TRACT INFECTION FUNGAL
     Dates: start: 20030101, end: 20030101
  3. ANTIBIOTICS [Concomitant]
  4. SOLUTIONS FOR PARENTERAL NUTRITION [Concomitant]

REACTIONS (4)
  - ACUTE RESPIRATORY FAILURE [None]
  - DRUG INEFFECTIVE [None]
  - PNEUMONIA FUNGAL [None]
  - SEPTIC SHOCK [None]
